FAERS Safety Report 4435289-6 (Version None)
Quarter: 2004Q3

REPORT INFORMATION
  Report Type: 
  Country: None (occurrence: None)
  Receive Date: 20040826
  Receipt Date: 20040811
  Transmission Date: 20050211
  Serious: Yes (Hospitalization)
  Sender: FDA-Public Use
  Company Number: 2004-DE-03480DE

PATIENT
  Age: 73 Year
  Sex: Male

DRUGS (6)
  1. MICARDIS HCT [Suspect]
     Indication: DIABETES MELLITUS
     Dosage: 40MG TELMISARTAN + 12,5MG HYDROCHLOROTHIAZID (SEE TEXT)
     Route: 048
     Dates: start: 20040209, end: 20040427
  2. MICARDIS HCT [Suspect]
     Indication: HYPERTENSION
     Dosage: 40MG TELMISARTAN + 12,5MG HYDROCHLOROTHIAZID (SEE TEXT)
     Route: 048
     Dates: start: 20040209, end: 20040427
  3. MICARDIS [Suspect]
     Indication: DIABETES MELLITUS
     Dosage: 80 MG (80 MG, 1 IN 1 D)
     Route: 048
     Dates: start: 20040428, end: 20040511
  4. MICARDIS [Suspect]
     Indication: HYPERTENSION
     Dosage: 80 MG (80 MG, 1 IN 1 D)
     Route: 048
     Dates: start: 20040428, end: 20040511
  5. AMARYL [Concomitant]
  6. REMERGIL (MIRTAZAPINE) [Concomitant]

REACTIONS (3)
  - BLOOD IMMUNOGLOBULIN E INCREASED [None]
  - DERMATITIS EXFOLIATIVE [None]
  - DRUG ERUPTION [None]
